FAERS Safety Report 5641118-5 (Version None)
Quarter: 2008Q1

REPORT INFORMATION
  Report Type: 
  Country: None (occurrence: None)
  Receive Date: 20080227
  Receipt Date: 20070123
  Transmission Date: 20080703
  Serious: No
  Sender: FDA-Public Use
  Company Number: A0636441A

PATIENT
  Age: 50 Year
  Sex: Female

DRUGS (6)
  1. NICORETTE [Suspect]
     Dates: start: 20070118, end: 20070120
  2. LITHIUM CARBONATE [Concomitant]
  3. MELLARIL [Concomitant]
  4. XANAX [Concomitant]
  5. SYNTHROID [Concomitant]
  6. LOPID [Concomitant]

REACTIONS (3)
  - FEELING ABNORMAL [None]
  - NERVOUSNESS [None]
  - PHARMACEUTICAL PRODUCT COMPLAINT [None]
